FAERS Safety Report 9892554 (Version 2)
Quarter: 2014Q1

REPORT INFORMATION
  Report Type: Spontaneous
  Country: PE (occurrence: PE)
  Receive Date: 20140212
  Receipt Date: 20140219
  Transmission Date: 20141002
  Serious: Yes (Other)
  Sender: FDA-Public Use
  Company Number: PHHY2014PE015248

PATIENT
  Age: 38 Year
  Sex: Female

DRUGS (4)
  1. METHOTREXATE [Suspect]
     Indication: PSORIASIS
     Dosage: 15 MG, PER WEEK
     Dates: start: 201005
  2. METHOTREXATE [Suspect]
     Dosage: 10 MG, UNK
  3. METHOTREXATE [Suspect]
     Dosage: 20 MG, PER WEEK
  4. METHOTREXATE [Suspect]
     Dosage: 22.5 MG, WEEKLY
     Route: 058

REACTIONS (10)
  - Myopathy [Recovered/Resolved]
  - Muscular weakness [Recovered/Resolved]
  - Blood creatine phosphokinase increased [Recovered/Resolved]
  - Gait disturbance [Recovering/Resolving]
  - Skin lesion [Not Recovered/Not Resolved]
  - Malaise [Recovered/Resolved]
  - Erythema [Recovered/Resolved]
  - Arthralgia [Recovered/Resolved]
  - Movement disorder [Unknown]
  - Alopecia [Recovered/Resolved]
